APPROVED DRUG PRODUCT: JOURNAVX
Active Ingredient: SUZETRIGINE
Strength: 50MG
Dosage Form/Route: TABLET;ORAL
Application: N219209 | Product #001
Applicant: VERTEX PHARMACEUTICALS INC
Approved: Jan 30, 2025 | RLD: Yes | RS: Yes | Type: RX

PATENTS:
Patent 11834441 | Expires: Dec 4, 2040

EXCLUSIVITY:
Code: NCE | Date: Jan 30, 2030